FAERS Safety Report 8477966-6 (Version None)
Quarter: 2012Q2

REPORT INFORMATION
  Report Type: 
  Country: None (occurrence: None)
  Receive Date: 20120629
  Receipt Date: 20120622
  Transmission Date: 20120825
  Serious: Yes (Hospitalization, Other)
  Sender: FDA-Public Use
  Company Number: BR-BRISTOL-MYERS SQUIBB COMPANY-16400640

PATIENT
  Age: 49 Year
  Sex: Male

DRUGS (3)
  1. IPILIMUMAB [Suspect]
     Indication: MALIGNANT MELANOMA
     Dosage: 25NOV-25NOV11,233MG 16DEC-16DEC11,237MG 27JAN12-27JAN12,246MG
     Route: 042
     Dates: start: 20111125, end: 20120127
  2. METHYLPREDNISOLONE [Concomitant]
     Dates: start: 20120106, end: 20120101
  3. DEXAMETHASONE [Concomitant]
     Dates: start: 20110101

REACTIONS (3)
  - ERYSIPELAS [None]
  - NEOPLASM MALIGNANT [None]
  - METASTASES TO CENTRAL NERVOUS SYSTEM [None]
